FAERS Safety Report 14119136 (Version 1)
Quarter: 2017Q4

REPORT INFORMATION
  Report Type: Spontaneous
  Country: US (occurrence: US)
  Receive Date: 20171023
  Receipt Date: 20171023
  Transmission Date: 20180321
  Serious: Yes (Hospitalization)
  Sender: FDA-Public Use
  Company Number: None

PATIENT
  Age: 6 Year
  Sex: Female

DRUGS (1)
  1. NOVOLOG [Suspect]
     Active Substance: INSULIN ASPART
     Indication: TYPE 1 DIABETES MELLITUS
     Dosage: ?          OTHER FREQUENCY:ABOUT 50 U DAILY;?
     Route: 058
     Dates: start: 20171008, end: 20171014

REACTIONS (2)
  - Partial seizures [None]
  - Blood glucose increased [None]

NARRATIVE: CASE EVENT DATE: 20171011
